FAERS Safety Report 6505019-2 (Version None)
Quarter: 2009Q4

REPORT INFORMATION
  Report Type: 
  Country: None (occurrence: None)
  Receive Date: 20091218
  Receipt Date: 20091212
  Transmission Date: 20100525
  Serious: Yes (Other)
  Sender: FDA-Public Use
  Company Number: JP-ASTRAZENECA-2009SE24521

PATIENT
  Age: 83 Year
  Sex: Male
  Weight: 53 kg

DRUGS (7)
  1. ZOLADEX [Suspect]
     Indication: PROSTATE CANCER
     Route: 058
     Dates: start: 20051006
  2. CASODEX [Suspect]
     Indication: PROSTATE CANCER
     Route: 048
     Dates: start: 20050216, end: 20080911
  3. LEUPLIN [Concomitant]
     Indication: PROSTATE CANCER
     Route: 058
     Dates: start: 20050222, end: 20050908
  4. ITOROL [Concomitant]
     Indication: CORONARY ARTERY STENOSIS
     Route: 048
     Dates: start: 20050406
  5. NIKORANMART [Concomitant]
     Indication: CORONARY ARTERY STENOSIS
     Dosage: DOSE UNKNOWN
     Route: 048
     Dates: start: 20050406
  6. GASTER D [Concomitant]
     Indication: GASTRITIS
     Dosage: DOSE UNKNOWN
     Route: 048
     Dates: start: 20050406
  7. ASPIRIN [Concomitant]
     Indication: CARDIAC PACEMAKER INSERTION
     Route: 048
     Dates: start: 20050511

REACTIONS (2)
  - BREAST CANCER [None]
  - BREAST CANCER MALE [None]
